FAERS Safety Report 5446087-9 (Version None)
Quarter: 2007Q3

REPORT INFORMATION
  Report Type: 
  Country: None (occurrence: None)
  Receive Date: 20070907
  Receipt Date: 20070829
  Transmission Date: 20080115
  Serious: Yes (Hospitalization)
  Sender: FDA-Public Use
  Company Number: US-AMGEN-US241129

PATIENT
  Sex: Female

DRUGS (2)
  1. ENBREL [Suspect]
     Indication: RHEUMATOID ARTHRITIS
     Route: 058
     Dates: start: 20030315
  2. METHOTREXATE [Concomitant]
     Route: 065
     Dates: start: 20000101

REACTIONS (5)
  - ABDOMINAL INFECTION [None]
  - DIVERTICULAR PERFORATION [None]
  - INCISIONAL HERNIA [None]
  - INTESTINAL PERFORATION [None]
  - NAUSEA [None]
